FAERS Safety Report 8955663 (Version 3)
Quarter: 2013Q1

REPORT INFORMATION
  Report Type: Spontaneous
  Country: JP (occurrence: JP)
  Receive Date: 20121207
  Receipt Date: 20130125
  Transmission Date: 20140127
  Serious: No
  Sender: FDA-Public Use
  Company Number: JP-B.I. PHARMACEUTICALS,INC./RIDGEFIELD-2012-BI-02177NB

PATIENT
  Age: 82 Year
  Sex: Male
  Weight: 46.6 kg

DRUGS (10)
  1. TRAZENTA [Suspect]
     Indication: DIABETES MELLITUS
     Dosage: 5 MG
     Route: 048
     Dates: start: 20120814, end: 20121114
  2. TRAZENTA [Suspect]
     Dosage: 5 MG
     Route: 048
     Dates: start: 20121109, end: 20121114
  3. GASRICK D [Concomitant]
     Indication: GASTRITIS
     Dosage: 20 MG
     Route: 048
  4. FUROSEMIDE [Concomitant]
     Indication: OEDEMA
     Dosage: 20 MG
     Route: 048
  5. CEFTRIAXONE NA [Concomitant]
     Indication: PYREXIA
     Dosage: 2 G
     Route: 042
     Dates: start: 20120827, end: 20120829
  6. SULBENICILLIN SODIUM [Concomitant]
     Indication: PYREXIA
     Dosage: 2 G
     Route: 042
     Dates: start: 20120829, end: 20120915
  7. FINIBAX [Concomitant]
     Indication: PYREXIA
     Dosage: 0.5 G
     Route: 042
     Dates: start: 20120915, end: 20120924
  8. LUPRAC [Concomitant]
     Indication: HYPERTENSION
     Dosage: 4 MG
     Route: 048
  9. MACACY-A [Concomitant]
     Indication: HYPERTENSION
     Dosage: 25 MG
     Route: 048
  10. BONOTEO [Concomitant]
     Indication: OSTEOPOROSIS
     Route: 048

REACTIONS (3)
  - Drug eruption [Recovered/Resolved]
  - Drug eruption [Recovered/Resolved]
  - Pyrexia [Recovered/Resolved]
